FAERS Safety Report 9171199 (Version 2)
Quarter: 2013Q2

REPORT INFORMATION
  Report Type: Spontaneous
  Country: ES (occurrence: ES)
  Receive Date: 20130319
  Receipt Date: 20130424
  Transmission Date: 20140414
  Serious: Yes (Other)
  Sender: FDA-Public Use
  Company Number: ES-UCBSA-080004

PATIENT
  Age: 37 Year
  Sex: Female
  Weight: 59 kg

DRUGS (4)
  1. CIMZIA [Suspect]
     Indication: RHEUMATOID ARTHRITIS
     Dosage: 400 MG/15 DAYS AT WEEKS 0,2 AND 4.200MG/15DAYS SINCE THEN
     Route: 058
     Dates: start: 20120514, end: 20120625
  2. DOLQUINE [Concomitant]
     Dosage: 200MG/DAY
     Route: 048
     Dates: start: 20090218
  3. DACORTIN [Concomitant]
     Dosage: 5MG/DAY
     Route: 048
     Dates: start: 20090212
  4. NATECAL D FLASH [Concomitant]
     Dosage: 1500MG CALCIUM CARBONATE, 400UI CHOLECALCIFEROL/DAY
     Route: 048
     Dates: start: 20090212

REACTIONS (2)
  - Pre-eclampsia [Recovered/Resolved]
  - Pregnancy [Recovered/Resolved]
